FAERS Safety Report 10298747 (Version 2)
Quarter: 2014Q3

REPORT INFORMATION
  Report Type: Report from Study
  Country: JP (occurrence: JP)
  Receive Date: 20140711
  Receipt Date: 20140723
  Transmission Date: 20150326
  Serious: Yes (Other)
  Sender: FDA-Public Use
  Company Number: JP-ABBVIE-14P-087-1258452-00

PATIENT
  Age: 72 Year
  Sex: Male

DRUGS (12)
  1. BLOPRESS [Concomitant]
     Active Substance: CANDESARTAN CILEXETIL
     Indication: PRODUCT USED FOR UNKNOWN INDICATION
     Dates: start: 20090401
  2. ABACAVIR SULFATE W/LAMIVUDINE [Concomitant]
     Active Substance: ABACAVIR\LAMIVUDINE
     Indication: PRODUCT USED FOR UNKNOWN INDICATION
     Dates: start: 20100617
  3. LEXIVA [Suspect]
     Active Substance: FOSAMPRENAVIR CALCIUM
     Indication: ACQUIRED IMMUNODEFICIENCY SYNDROME
     Route: 048
     Dates: start: 20060814
  4. ASPIRIN. [Concomitant]
     Active Substance: ASPIRIN
     Indication: PRODUCT USED FOR UNKNOWN INDICATION
  5. NORVIR [Suspect]
     Active Substance: RITONAVIR
     Indication: ACQUIRED IMMUNODEFICIENCY SYNDROME
     Route: 048
     Dates: start: 20060814, end: 20111002
  6. RITONAVIR [Concomitant]
     Active Substance: RITONAVIR
     Indication: PRODUCT USED FOR UNKNOWN INDICATION
     Dates: start: 20120401
  7. BEZAFIBRATE [Concomitant]
     Active Substance: BEZAFIBRATE
     Indication: HYPERLIPIDAEMIA
     Dates: start: 20090430
  8. TRUVADA [Suspect]
     Active Substance: EMTRICITABINE\TENOFOVIR DISOPROXIL FUMARATE
     Indication: ACQUIRED IMMUNODEFICIENCY SYNDROME
     Route: 048
     Dates: start: 20080424, end: 20100616
  9. PRIMPERAN [Concomitant]
     Active Substance: METOCLOPRAMIDE HYDROCHLORIDE
     Indication: GASTROOESOPHAGEAL REFLUX DISEASE
     Dates: start: 20090401
  10. BUFFERIN [Concomitant]
     Active Substance: ASPIRIN
     Indication: HYPERTENSION
     Dates: start: 20090401
  11. AMLODIN [Concomitant]
     Active Substance: AMLODIPINE BESYLATE
     Indication: HYPERTENSION
     Dates: start: 20090401
  12. PARIET [Concomitant]
     Active Substance: RABEPRAZOLE SODIUM
     Indication: GASTRITIS
     Dates: start: 20090401

REACTIONS (2)
  - Hypertriglyceridaemia [Recovered/Resolved]
  - Renal tubular disorder [Recovering/Resolving]

NARRATIVE: CASE EVENT DATE: 20090430
